FAERS Safety Report 14731867 (Version 2)
Quarter: 2019Q1

REPORT INFORMATION
  Report Type: Spontaneous
  Country: US (occurrence: US)
  Receive Date: 20180408
  Receipt Date: 20190206
  Transmission Date: 20190417
  Serious: No
  Sender: FDA-Public Use
  Company Number: US-TEVA-2018-US-877946

PATIENT
  Age: 36 Year
  Sex: Female

DRUGS (1)
  1. CLOTRIMAZOLE AND BETAMETHASON DIPROPIONATE [Suspect]
     Active Substance: BETAMETHASONE\CLOTRIMAZOLE
     Indication: TINEA INFECTION
     Route: 061
     Dates: start: 20180306, end: 20180320

REACTIONS (1)
  - Rash erythematous [Recovered/Resolved]

NARRATIVE: CASE EVENT DATE: 20180307
